FAERS Safety Report 7960049-9 (Version None)
Quarter: 2011Q4

REPORT INFORMATION
  Report Type: 
  Country: None (occurrence: None)
  Receive Date: 20111206
  Receipt Date: 20111121
  Transmission Date: 20120403
  Serious: Yes (Other)
  Sender: FDA-Public Use
  Company Number: PHHY2011JP103531

PATIENT

DRUGS (1)
  1. RITALIN [Suspect]
     Indication: DEVELOPMENTAL DELAY
     Dosage: UNK UKN, UNK
     Route: 048

REACTIONS (4)
  - TOXICITY TO VARIOUS AGENTS [None]
  - HYPOAESTHESIA [None]
  - TETANY [None]
  - TREMOR [None]
